FAERS Safety Report 5041618-5 (Version None)
Quarter: 2006Q2

REPORT INFORMATION
  Report Type: 
  Country: None (occurrence: None)
  Receive Date: 20060601
  Receipt Date: 20060228
  Transmission Date: 20061013
  Serious: No
  Sender: FDA-Public Use
  Company Number: 2006PV009429

PATIENT
  Age: 55 Year
  Sex: Female
  Weight: 103.8737 kg

DRUGS (6)
  1. BYETTA [Suspect]
     Indication: DIABETES MELLITUS NON-INSULIN-DEPENDENT
     Dosage: 5 MCG;BID;SC
     Route: 058
     Dates: start: 20060220
  2. ACTOS [Concomitant]
  3. GLUCOPHAGE [Concomitant]
  4. LANTUS [Concomitant]
  5. NOVOLOG [Concomitant]
  6. LASIX [Concomitant]

REACTIONS (2)
  - THERAPEUTIC RESPONSE UNEXPECTED [None]
  - WEIGHT DECREASED [None]
